FAERS Safety Report 15165669 (Version 1)
Quarter: 2018Q3

REPORT INFORMATION
  Report Type: Spontaneous
  Country: GB (occurrence: GB)
  Receive Date: 20180719
  Receipt Date: 20180719
  Transmission Date: 20181010
  Serious: Yes (Other)
  Sender: FDA-Public Use
  Company Number: GB-PFIZER INC-2018285245

PATIENT
  Age: 2 Day
  Sex: Male
  Weight: 3.4 kg

DRUGS (3)
  1. BENZYLPENICILLIN [Concomitant]
     Active Substance: PENICILLIN G
     Indication: PROPHYLAXIS
     Dosage: 50 MG/KG, 1X/DAY
     Route: 042
     Dates: start: 20180602
  2. DOPAMINE HCL [Suspect]
     Active Substance: DOPAMINE HYDROCHLORIDE
     Indication: HYPOTENSION
     Dosage: 5 MG/KG, UNK
     Route: 042
     Dates: start: 20180603, end: 20180603
  3. GENTAMICIN. [Concomitant]
     Active Substance: GENTAMICIN
     Indication: PROPHYLAXIS
     Dosage: 5 MG/KG, UNK (EVERY 36 HOURS)
     Route: 042
     Dates: start: 20180602

REACTIONS (6)
  - Pallor [Recovered/Resolved]
  - Scrotal oedema [Recovered/Resolved]
  - Swelling face [Recovered/Resolved]
  - Rash generalised [Recovered/Resolved]
  - Erythema [Recovered/Resolved]
  - Angioedema [Recovered/Resolved]

NARRATIVE: CASE EVENT DATE: 20180603
